FAERS Safety Report 9327146 (Version 2)
Quarter: 2013Q4

REPORT INFORMATION
  Report Type: Spontaneous
  Country: US (occurrence: US)
  Receive Date: 20130604
  Receipt Date: 20131106
  Transmission Date: 20140711
  Serious: No
  Sender: FDA-Public Use
  Company Number: US-AMGEN-USASP2013035251

PATIENT
  Age: 65 Year
  Sex: Female

DRUGS (2)
  1. ENBREL [Suspect]
     Indication: PSORIATIC ARTHROPATHY
     Dosage: UNK UNK, QWK
     Route: 065
     Dates: start: 20070415
  2. ENBREL [Suspect]
     Indication: PSORIASIS

REACTIONS (4)
  - Cataract [Not Recovered/Not Resolved]
  - Visual impairment [Not Recovered/Not Resolved]
  - Arthralgia [Not Recovered/Not Resolved]
  - Skin plaque [Not Recovered/Not Resolved]
